FAERS Safety Report 7757382 (Version 2)
Quarter: 2013Q3

REPORT INFORMATION
  Report Type: Spontaneous
  Country: US (occurrence: None)
  Receive Date: 20101216
  Receipt Date: 20130701
  Transmission Date: 20140515
  Serious: Yes (Hospitalization)
  Sender: FDA-Public Use
  Company Number: AUR-APL-2010-02997

PATIENT
  Age: 50 Year
  Sex: Male

DRUGS (3)
  1. AMLODIPINE [Suspect]
     Indication: SUICIDE ATTEMPT
     Dosage: 500MG - ONCE - ORAL
     Route: 048
  2. HYDROCHLOROTHIAZIDE (HYDROCHLOROTHIAZIDE) [Concomitant]
  3. LISINOPRIL (LISINOPRIL) [Concomitant]

REACTIONS (13)
  - Renal failure acute [None]
  - Suicidal ideation [None]
  - Respiratory failure [None]
  - Shock [None]
  - Sepsis [None]
  - Intentional overdose [None]
  - Cardiac output decreased [None]
  - Vasodilatation [None]
  - Toxicity to various agents [None]
  - Continuous haemodiafiltration [None]
  - Suicide attempt [None]
  - Ventricular dysfunction [None]
  - Mental status changes [None]
